FAERS Safety Report 9139333 (Version 1)
Quarter: 2013Q1

REPORT INFORMATION
  Report Type: Spontaneous
  Country: US (occurrence: None)
  Receive Date: 20130206
  Receipt Date: 20130206
  Transmission Date: 20140127
  Serious: Yes (Death)
  Sender: FDA-Public Use
  Company Number: NSR_00881_2013

PATIENT
  Age: 50 Year
  Sex: Female

DRUGS (4)
  1. VENLAFAXINE [Suspect]
     Indication: PRODUCT USED FOR UNKNOWN INDICATION
     Dosage: (DF ORAL)
     Route: 048
  2. ACETAMINOPHEN W/HYDROCODONE [Suspect]
     Dosage: (DF ORAL)
     Route: 048
  3. HYDROMORPHONE [Suspect]
     Dosage: (DF ORAL)
     Route: 048
  4. MUSCLE RELAXANTS [Suspect]
     Dosage: (DF ORAL)
     Route: 048

REACTIONS (2)
  - Poisoning [None]
  - Drug abuse [None]
